FAERS Safety Report 6395625-0 (Version None)
Quarter: 2009Q4

REPORT INFORMATION
  Report Type: 
  Country: None (occurrence: None)
  Receive Date: 20091009
  Receipt Date: 20090928
  Transmission Date: 20100525
  Serious: Yes (Life-Threatening, Hospitalization)
  Sender: FDA-Public Use
  Company Number: JP-PFIZER INC-2009206853

PATIENT
  Age: 75 Year

DRUGS (4)
  1. SUNITINIB MALATE [Suspect]
     Indication: RENAL CELL CARCINOMA
     Dosage: 37.5 MG, 1X/DAY
     Route: 048
     Dates: start: 20090327
  2. RINDERON [Concomitant]
     Dosage: UNK
     Route: 042
     Dates: start: 20090307
  3. DEPAKENE [Concomitant]
     Dosage: UNK
     Route: 048
     Dates: start: 20090304
  4. TAKEPRON [Concomitant]
     Dosage: UNK
     Route: 048

REACTIONS (9)
  - ANAEMIA [None]
  - BLOOD THYROID STIMULATING HORMONE INCREASED [None]
  - ILEUS [None]
  - MYOPATHY [None]
  - NEUTROPENIA [None]
  - PLATELET COUNT DECREASED [None]
  - REFLUX OESOPHAGITIS [None]
  - STOMATITIS [None]
  - WHITE BLOOD CELL COUNT DECREASED [None]
